FAERS Safety Report 11932555 (Version 3)
Quarter: 2016Q1

REPORT INFORMATION
  Report Type: Spontaneous
  Country: BR (occurrence: BR)
  Receive Date: 20160120
  Receipt Date: 20160321
  Transmission Date: 20160526
  Serious: Yes (Death, Life-Threatening, Hospitalization, Other)
  Sender: FDA-Public Use
  Company Number: BR-PFIZER INC-2016024042

PATIENT
  Age: 70 Year
  Sex: Male

DRUGS (2)
  1. SUTENT [Suspect]
     Active Substance: SUNITINIB MALATE
     Dosage: 20 MG, UNK
     Dates: start: 20151230, end: 20160106
  2. SUTENT [Suspect]
     Active Substance: SUNITINIB MALATE
     Indication: METASTATIC RENAL CELL CARCINOMA
     Dosage: 50 MG, CYCLE 4 X 2
     Route: 048
     Dates: start: 20151121, end: 20151218

REACTIONS (13)
  - Abdominal pain upper [Unknown]
  - Fatigue [Unknown]
  - Cardiac disorder [Unknown]
  - Thrombocytopenia [Unknown]
  - Renal impairment [Unknown]
  - Hiccups [Unknown]
  - Respiratory disorder [Unknown]
  - Blood disorder [Unknown]
  - Acute kidney injury [Unknown]
  - Decreased appetite [Unknown]
  - Liver disorder [Unknown]
  - Sepsis [Fatal]
  - Cardiac arrest [Unknown]

NARRATIVE: CASE EVENT DATE: 2015
